FAERS Safety Report 19499227 (Version 1)
Quarter: 2021Q3

REPORT INFORMATION
  Report Type: Spontaneous
  Country: US (occurrence: US)
  Receive Date: 20210706
  Receipt Date: 20210706
  Transmission Date: 20211014
  Serious: Yes (Hospitalization)
  Sender: FDA-Public Use
  Company Number: US-ACELLA PHARMACEUTICALS, LLC-2113508

PATIENT
  Age: 67 Year
  Sex: Male

DRUGS (2)
  1. DIAZEPAM. [Suspect]
     Active Substance: DIAZEPAM
     Route: 065
  2. HYDROCODONE BITARTRATE AND CHLORPHENIRAMINE MALEATE [Suspect]
     Active Substance: CHLORPHENIRAMINE MALEATE\HYDROCODONE BITARTRATE
     Indication: BACK PAIN
     Route: 065

REACTIONS (7)
  - Pneumonia [Unknown]
  - Delirium [Unknown]
  - Mental status changes [Unknown]
  - Cognitive disorder [Unknown]
  - Respiratory failure [Unknown]
  - Drug withdrawal syndrome [Unknown]
  - Atrial fibrillation [Unknown]
